FAERS Safety Report 24291742 (Version 3)
Quarter: 2025Q1

REPORT INFORMATION
  Report Type: Report from Study
  Country: US (occurrence: US)
  Receive Date: 20240906
  Receipt Date: 20250102
  Transmission Date: 20250408
  Serious: Yes (Other)
  Sender: SUNOVION
  Company Number: US-SUMITOMO PHARMA SWITZERLAND GMBH-2024SPA001333

PATIENT

DRUGS (3)
  1. ORGOVYX [Suspect]
     Active Substance: RELUGOLIX
     Indication: Prostate cancer
     Route: 048
  2. ORGOVYX [Suspect]
     Active Substance: RELUGOLIX
     Dosage: 120 MG, QD
     Route: 048
     Dates: start: 20230621
  3. NAPROXEN [Concomitant]
     Active Substance: NAPROXEN
     Route: 065

REACTIONS (4)
  - Intervertebral disc displacement [Unknown]
  - COVID-19 [Unknown]
  - Mass [Unknown]
  - Hypertension [Unknown]
